FAERS Safety Report 6999427-3 (Version None)
Quarter: 2010Q3

REPORT INFORMATION
  Report Type: 
  Country: None (occurrence: None)
  Receive Date: 20100920
  Receipt Date: 20100910
  Transmission Date: 20110219
  Serious: Yes (Hospitalization)
  Sender: FDA-Public Use
  Company Number: BR-ASTRAZENECA-2010SE42869

PATIENT
  Age: 80 Year
  Sex: Female
  Weight: 87 kg

DRUGS (8)
  1. OMEPRAZOLE [Suspect]
     Indication: GASTRITIS EROSIVE
     Route: 048
     Dates: start: 20060101, end: 20100701
  2. SERETIDE [Concomitant]
     Indication: ASTHMA
     Route: 055
     Dates: start: 20070101, end: 20100801
  3. PROLOPA [Concomitant]
     Indication: PARKINSON'S DISEASE
     Route: 048
     Dates: start: 20040101
  4. CIFRAN [Concomitant]
     Route: 048
     Dates: start: 20040101
  5. SINGULAIR [Concomitant]
     Indication: ASTHMA
     Route: 055
     Dates: start: 20070101
  6. AMARYL [Concomitant]
     Indication: DIABETES MELLITUS
     Route: 048
     Dates: start: 20040101
  7. RIVOTRIL [Concomitant]
     Indication: DEPRESSION
     Route: 048
     Dates: start: 19950101
  8. ANAFRANIL [Concomitant]
     Indication: DEPRESSION
     Route: 048
     Dates: start: 19950101

REACTIONS (2)
  - ASTHMA [None]
  - BRONCHOSPASM [None]
